FAERS Safety Report 22102623 (Version 2)
Quarter: 2023Q1

REPORT INFORMATION
  Report Type: Spontaneous
  Country: CH (occurrence: CH)
  Receive Date: 20230316
  Receipt Date: 20230328
  Transmission Date: 20230418
  Serious: Yes (Hospitalization, Disabling)
  Sender: FDA-Public Use
  Company Number: CH-TEVA-2023-CH-2866146

PATIENT
  Age: 46 Year
  Sex: Female

DRUGS (8)
  1. FENTANYL [Suspect]
     Active Substance: FENTANYL
     Indication: Procedural pain
     Route: 065
  2. METIXENE [Concomitant]
     Indication: Irritable bowel syndrome
     Route: 065
  3. PEPSIN [Concomitant]
     Active Substance: PEPSIN
     Indication: Irritable bowel syndrome
     Route: 065
  4. DIMETHICONE [Concomitant]
     Active Substance: DIMETHICONE
     Indication: Irritable bowel syndrome
     Route: 065
  5. Glutaminic acid hydrochloride [Concomitant]
     Indication: Irritable bowel syndrome
     Route: 065
  6. PANCREATIN [Concomitant]
     Active Substance: PANCRELIPASE
     Indication: Irritable bowel syndrome
     Route: 065
  7. CELLULOSE [Concomitant]
     Active Substance: POWDERED CELLULOSE
     Indication: Irritable bowel syndrome
     Route: 065
  8. DEHYDROCHOLIC ACID [Concomitant]
     Active Substance: DEHYDROCHOLIC ACID
     Indication: Irritable bowel syndrome
     Route: 065

REACTIONS (2)
  - Porphyria acute [Recovered/Resolved with Sequelae]
  - Acute motor-sensory axonal neuropathy [Not Recovered/Not Resolved]
